FAERS Safety Report 6970973-1 (Version None)
Quarter: 2010Q3

REPORT INFORMATION
  Report Type: 
  Country: None (occurrence: None)
  Receive Date: 20100908
  Receipt Date: 20100827
  Transmission Date: 20110219
  Serious: Yes (Other)
  Sender: FDA-Public Use
  Company Number: US-PFIZER INC-2010042236

PATIENT
  Sex: Male

DRUGS (6)
  1. CHANTIX [Suspect]
     Indication: SMOKING CESSATION THERAPY
     Dosage: UNK
     Dates: start: 20080314, end: 20080401
  2. METHADONE [Concomitant]
     Indication: PAIN
     Dosage: UNK
     Dates: start: 20060101
  3. PHENYTOIN [Concomitant]
     Indication: CONVULSION
     Dosage: UNK
     Dates: start: 20060101
  4. TIZANIDINE [Concomitant]
     Indication: MUSCLE RELAXANT THERAPY
     Dosage: UNK
     Dates: start: 20060101
  5. NAPROXEN [Concomitant]
     Dosage: UNK
     Dates: start: 20060101
  6. OMEPRAZOLE [Concomitant]
     Indication: GASTROOESOPHAGEAL REFLUX DISEASE
     Dosage: UNK
     Dates: start: 20070101

REACTIONS (9)
  - ABNORMAL DREAMS [None]
  - AFFECTIVE DISORDER [None]
  - ANGER [None]
  - ANXIETY [None]
  - HOMICIDAL IDEATION [None]
  - MAJOR DEPRESSION [None]
  - MENTAL DISORDER [None]
  - PARANOIA [None]
  - SUICIDE ATTEMPT [None]
